FAERS Safety Report 20916855 (Version 1)
Quarter: 2022Q2

REPORT INFORMATION
  Report Type: Spontaneous
  Country: US (occurrence: US)
  Receive Date: 20220605
  Receipt Date: 20220605
  Transmission Date: 20220721
  Serious: Yes (Hospitalization)
  Sender: FDA-Public Use
  Company Number: US-BIOGEN-2022BI01128715

PATIENT

DRUGS (1)
  1. SPINRAZA [Suspect]
     Active Substance: NUSINERSEN
     Indication: Spinal muscular atrophy
     Route: 065
     Dates: start: 20220304

REACTIONS (7)
  - Rhinovirus infection [Unknown]
  - Sepsis [Unknown]
  - Pulmonary embolism [Unknown]
  - Motor dysfunction [Unknown]
  - Asthenia [Unknown]
  - Thrombosis [Unknown]
  - Pneumonia [Unknown]
